FAERS Safety Report 11122486 (Version 1)
Quarter: 2015Q2

REPORT INFORMATION
  Report Type: Spontaneous
  Country: US (occurrence: None)
  Receive Date: 20150518
  Receipt Date: 20150518
  Transmission Date: 20150821
  Serious: No
  Sender: FDA-Public Use
  Company Number: None

PATIENT
  Age: 52 Year
  Sex: Male
  Weight: 88.45 kg

DRUGS (5)
  1. CABERGOLINE. [Suspect]
     Active Substance: CABERGOLINE
     Indication: EJACULATION DISORDER
     Dosage: 1 0.5 MG PILL TWICE/WEEK TAKEN BY MOUTH
     Route: 048
     Dates: start: 20150219, end: 20150427
  2. DAILY MULTI-VITAMIN [Concomitant]
  3. INJECTION TESTOSTERONE [Concomitant]
  4. OMEGA-3 PILL [Concomitant]
  5. DAILY ^BABY^ ASPIRIN [Concomitant]

REACTIONS (2)
  - Abnormal faeces [None]
  - Dysgeusia [None]

NARRATIVE: CASE EVENT DATE: 20150219
